FAERS Safety Report 8756138 (Version 2)
Quarter: 2013Q3

REPORT INFORMATION
  Report Type: Spontaneous
  Country: US (occurrence: US)
  Receive Date: 20120828
  Receipt Date: 20130705
  Transmission Date: 20140515
  Serious: No
  Sender: FDA-Public Use
  Company Number: US-JNJFOC-20120801908

PATIENT
  Age: 37 Year
  Sex: Female
  Weight: 54.89 kg

DRUGS (3)
  1. INVEGA SUSTENNA [Suspect]
     Indication: SCHIZOPHRENIA
     Route: 030
     Dates: start: 201003
  2. COGENTIN [Concomitant]
     Route: 048
  3. CELEXA [Concomitant]
     Route: 048

REACTIONS (1)
  - Injection site mass [Not Recovered/Not Resolved]
